FAERS Safety Report 9882316 (Version 3)
Quarter: 2014Q1

REPORT INFORMATION
  Report Type: Spontaneous
  Country: US (occurrence: US)
  Receive Date: 20140207
  Receipt Date: 20140319
  Transmission Date: 20141002
  Serious: Yes (Hospitalization, Other)
  Sender: FDA-Public Use
  Company Number: US-AMGEN-USASP2013073420

PATIENT
  Age: 33 Year
  Sex: Male

DRUGS (6)
  1. NPLATE [Suspect]
     Indication: IMMUNE THROMBOCYTOPENIC PURPURA
     Dosage: 1 MUG, QWK
     Route: 065
     Dates: start: 201208
  2. AMBIEN [Concomitant]
     Dosage: 10 MG, AS NECESSARY
  3. XANAX [Concomitant]
     Dosage: 0.5 MG, UNK
  4. ATROPINE [Concomitant]
  5. PROMACTA [Concomitant]
     Route: 065
  6. RITUXIMAB [Concomitant]
     Route: 065

REACTIONS (29)
  - Splenectomy [Unknown]
  - Fear of death [Unknown]
  - Pulse abnormal [Recovering/Resolving]
  - Body temperature increased [Recovering/Resolving]
  - Dyspnoea [Unknown]
  - Feeling abnormal [Recovering/Resolving]
  - Memory impairment [Unknown]
  - White blood cell count abnormal [Unknown]
  - Dizziness [Unknown]
  - Fatigue [Unknown]
  - Thyroid disorder [Unknown]
  - Platelet count abnormal [Recovering/Resolving]
  - Night sweats [Recovering/Resolving]
  - Nausea [Recovering/Resolving]
  - Tinnitus [Unknown]
  - Gingival bleeding [Unknown]
  - Musculoskeletal pain [Unknown]
  - Hypoaesthesia [Unknown]
  - Vertigo [Unknown]
  - Lethargy [Unknown]
  - Abnormal dreams [Unknown]
  - Arthralgia [Recovering/Resolving]
  - Dyspepsia [Unknown]
  - Drug ineffective [Unknown]
  - Headache [Unknown]
  - Insomnia [Unknown]
  - Myalgia [Unknown]
  - Pain in extremity [Unknown]
  - Paraesthesia [Unknown]
